FAERS Safety Report 8986146 (Version 1)
Quarter: 2012Q4

REPORT INFORMATION
  Report Type: Spontaneous
  Country: US (occurrence: None)
  Receive Date: 20121219
  Receipt Date: 20121219
  Transmission Date: 20130627
  Serious: Yes (Hospitalization)
  Sender: FDA-Public Use
  Company Number: None

PATIENT
  Age: 65 Year
  Sex: Male
  Weight: 74.1 kg

DRUGS (2)
  1. TRAMADOL [Suspect]
     Indication: PAIN
     Dosage: PRN
     Dates: start: 20120924, end: 20121101
  2. SERTRALINE [Suspect]
     Indication: DEPRESSION
     Dosage: 150 MG EVERY DAY PO
     Route: 048

REACTIONS (6)
  - Dysarthria [None]
  - Confusional state [None]
  - Intentional drug misuse [None]
  - Hallucination [None]
  - Serotonin syndrome [None]
  - Sedation [None]
